FAERS Safety Report 11234840 (Version 2)
Quarter: 2015Q4

REPORT INFORMATION
  Report Type: Spontaneous
  Country: US (occurrence: US)
  Receive Date: 20150702
  Receipt Date: 20151020
  Transmission Date: 20160304
  Serious: Yes (Hospitalization)
  Sender: FDA-Public Use
  Company Number: US-ELI_LILLY_AND_COMPANY-US201506009412

PATIENT
  Age: 67 Year
  Sex: Female
  Weight: 85.26 kg

DRUGS (1)
  1. HUMALOG [Suspect]
     Active Substance: INSULIN LISPRO
     Indication: PRODUCT USED FOR UNKNOWN INDICATION
     Dosage: UNK
     Route: 058

REACTIONS (9)
  - Uterine leiomyoma [Unknown]
  - Cystitis [Unknown]
  - Blood glucose abnormal [Unknown]
  - Infusion site induration [Unknown]
  - Blood glucose decreased [Unknown]
  - Infusion site haemorrhage [Unknown]
  - Urinary tract infection [Unknown]
  - Polyp [Unknown]
  - Blood glucose increased [Unknown]

NARRATIVE: CASE EVENT DATE: 20150613
